FAERS Safety Report 9983169 (Version 10)
Quarter: 2015Q4

REPORT INFORMATION
  Report Type: Report from Study
  Country: DE (occurrence: DE)
  Receive Date: 20140307
  Receipt Date: 20151021
  Transmission Date: 20160305
  Serious: Yes (Death, Hospitalization)
  Sender: FDA-Public Use
  Company Number: DE-B.I. PHARMACEUTICALS,INC./RIDGEFIELD-2014-BI-08468II

PATIENT
  Age: 77 Year
  Sex: Male
  Weight: 106 kg

DRUGS (25)
  1. PENTALONG [Concomitant]
     Active Substance: PENTAERYTHRITOL TETRANITRATE
     Indication: CARDIAC DISORDER
     Route: 048
     Dates: start: 2011
  2. ASPIRIN. [Concomitant]
     Active Substance: ASPIRIN
     Indication: THROMBOSIS
     Dosage: 100 MG
     Route: 048
     Dates: start: 2011
  3. SIMVABELA [Concomitant]
     Indication: HYPERLIPIDAEMIA
     Dosage: 20 MG
     Route: 048
     Dates: start: 2013
  4. BIBW 2992 [Suspect]
     Active Substance: AFATINIB
     Indication: PANCREATIC CARCINOMA METASTATIC
     Dosage: 30 MG
     Route: 048
     Dates: start: 20140115, end: 20140223
  5. MOLSIDOMIN [Concomitant]
     Indication: CARDIAC DISORDER
     Dosage: 8 MG
     Route: 048
     Dates: start: 2004
  6. FENTANYL. [Concomitant]
     Active Substance: FENTANYL
     Indication: CANCER PAIN
     Dosage: 12 MCG
     Route: 061
     Dates: start: 20140108
  7. BEPARTHEN MUNDSPULLOSUNG [Concomitant]
     Indication: DRY MOUTH
     Route: 065
     Dates: start: 20140122, end: 20140124
  8. ARIXTRA HEPARINSPRITIZEN [Concomitant]
     Indication: THROMBOSIS
     Dosage: 7.5 MG
     Route: 058
     Dates: start: 20140127
  9. ISDN [Concomitant]
     Indication: CARDIAC DISORDER
     Route: 065
     Dates: start: 201312, end: 20140124
  10. FRESUBIN DRINK [Concomitant]
     Indication: NUTRITIONAL SUPPLEMENTATION
     Route: 048
     Dates: start: 20140211
  11. NACL + ASS [Concomitant]
     Indication: CHRONIC OBSTRUCTIVE PULMONARY DISEASE
     Dosage: 1000 ML
     Route: 065
     Dates: start: 20140212, end: 20140212
  12. NACL + CERNEVIT [Concomitant]
     Indication: VITAMIN SUPPLEMENTATION
     Dosage: 1000ML
     Route: 065
     Dates: start: 20140218
  13. GEMCITABINE [Suspect]
     Active Substance: GEMCITABINE\GEMCITABINE HYDROCHLORIDE
     Indication: PANCREATIC CARCINOMA METASTATIC
     Dosage: DOSE PER APPLICATION: 1000MG/ METER SQUARE
     Route: 042
     Dates: start: 20140115, end: 20140219
  14. ALLOPURINOL. [Concomitant]
     Active Substance: ALLOPURINOL
     Indication: HYPERURICAEMIA
     Dosage: 150 MG
     Route: 048
     Dates: start: 2004
  15. PROVAS [Concomitant]
     Active Substance: VALSARTAN
     Indication: HYPERTENSION
     Dosage: 160 MG
     Route: 048
     Dates: start: 2004
  16. BISOPROLOL COMB [Concomitant]
     Indication: HYPERTENSION
     Route: 065
     Dates: start: 2011, end: 20140122
  17. TORASEMID [Concomitant]
     Active Substance: TORSEMIDE
     Dosage: 10 MG
     Route: 065
     Dates: start: 20140127
  18. OMEPRAZOL [Concomitant]
     Active Substance: OMEPRAZOLE
     Indication: PROPHYLAXIS
     Dosage: 40 MG
     Route: 048
     Dates: start: 201311
  19. FORMOTEROL [Concomitant]
     Active Substance: FORMOTEROL
     Indication: CHRONIC OBSTRUCTIVE PULMONARY DISEASE
     Dosage: 0.8 MG
     Route: 048
     Dates: start: 2004
  20. SALBUTAMOL DA [Concomitant]
     Indication: CHRONIC OBSTRUCTIVE PULMONARY DISEASE
     Route: 048
     Dates: start: 2004
  21. TORASEMID [Concomitant]
     Active Substance: TORSEMIDE
     Indication: PROPHYLAXIS AGAINST DEHYDRATION
     Route: 065
     Dates: start: 2011, end: 20140225
  22. NOVALGIN [Concomitant]
     Active Substance: METAMIZOLE SODIUM
     Indication: CANCER PAIN
     Dosage: 2 G
     Route: 048
     Dates: start: 201312
  23. BUDENOSIDE DA [Concomitant]
     Indication: CHRONIC OBSTRUCTIVE PULMONARY DISEASE
     Dosage: 0.4 MG
     Route: 048
     Dates: start: 2004
  24. DILTIAZEM RET [Concomitant]
     Indication: CARDIAC DISORDER
     Dosage: 180 MG
     Route: 048
     Dates: start: 2004
  25. CIPROFLOXACIN. [Concomitant]
     Active Substance: CIPROFLOXACIN
     Indication: HAEMATOMA
     Route: 065
     Dates: start: 20140108, end: 20140117

REACTIONS (5)
  - Dehydration [Recovered/Resolved]
  - General physical health deterioration [Recovered/Resolved]
  - Diarrhoea [Recovered/Resolved]
  - Nausea [Recovered/Resolved]
  - Malignant neoplasm progression [Fatal]

NARRATIVE: CASE EVENT DATE: 20140120
